FAERS Safety Report 11179483 (Version 1)
Quarter: 2015Q2

REPORT INFORMATION
  Report Type: Report from Study
  Country: US (occurrence: US)
  Receive Date: 20150611
  Receipt Date: 20150611
  Transmission Date: 20150821
  Serious: Yes (Other)
  Sender: FDA-Public Use
  Company Number: US-ROCHE-1490314

PATIENT

DRUGS (7)
  1. LENALIDOMIDE [Suspect]
     Active Substance: LENALIDOMIDE
     Indication: CHRONIC LYMPHOCYTIC LEUKAEMIA
     Dosage: CYCLE 1, DAY 8-28 AND AS CONSOLIDATION/MAINTENANCE THERAPY DAY 1-28
     Route: 048
  2. CYCLOPHOSPHAMIDE. [Suspect]
     Active Substance: CYCLOPHOSPHAMIDE
     Indication: CHRONIC LYMPHOCYTIC LEUKAEMIA
     Dosage: CYCLE 1, DAY 2-4?CYCLE 2, DAY 1-3?CYCLE 3-6, DAY 1-3
     Route: 042
  3. LENALIDOMIDE [Suspect]
     Active Substance: LENALIDOMIDE
     Dosage: CYCLE 2, DAY 8-28 AND AS CONSOLIDATION/MAINTENANCE THERAPY DAY 1-28
     Route: 048
  4. RITUXIMAB [Suspect]
     Active Substance: RITUXIMAB
     Indication: CHRONIC LYMPHOCYTIC LEUKAEMIA
     Dosage: CYCLE 1, DAY 1 MAY BE GIVEN IN DIVIDED DOSES; 50 MG/M2 ON DAY 1, 100 MG/M2 ON DAY 2, AND 225 MG/M2 O
     Route: 042
  5. LENALIDOMIDE [Suspect]
     Active Substance: LENALIDOMIDE
     Dosage: CYCLE 3, DAY 8-28 AND AS CONSOLIDATION/MAINTENANCE THERAPY DAY 1-28
     Route: 048
  6. RITUXIMAB [Suspect]
     Active Substance: RITUXIMAB
     Dosage: CYCLE 1, DAY 14+/-2.?CYCLE 2, DAY 1 AND 14+/-2?CYCLE 3-6, DAY 1 AND 14+/-2
     Route: 042
  7. FLUDARABINE [Suspect]
     Active Substance: FLUDARABINE PHOSPHATE
     Indication: CHRONIC LYMPHOCYTIC LEUKAEMIA
     Dosage: CYCLE 1, DAY 2-4?CYCLE 2, DAY 1-3?CYCLE 3, DAY 1-3
     Route: 042

REACTIONS (9)
  - Muscular weakness [Recovered/Resolved]
  - Rash [Recovered/Resolved]
  - Rash maculo-papular [Recovered/Resolved]
  - Upper respiratory tract infection [Recovered/Resolved]
  - Staphylococcal bacteraemia [Unknown]
  - Pyrexia [Recovered/Resolved]
  - Seizure [Recovered/Resolved]
  - Febrile neutropenia [Recovered/Resolved]
  - Infusion related reaction [Unknown]
